FAERS Safety Report 6381592-2 (Version None)
Quarter: 2009Q3

REPORT INFORMATION
  Report Type: 
  Country: None (occurrence: None)
  Receive Date: 20090925
  Receipt Date: 20090918
  Transmission Date: 20100115
  Serious: Yes (Death, Other)
  Sender: FDA-Public Use
  Company Number: 2009EU003596

PATIENT
  Age: 52 Year
  Sex: Male

DRUGS (3)
  1. PROGRAF [Suspect]
     Indication: RENAL TRANSPLANT
     Dosage: 3 MG, UID/QD, ORAL
     Route: 048
     Dates: start: 20090317, end: 20090902
  2. MYFORTIC [Suspect]
     Indication: RENAL TRANSPLANT
     Dosage: 144.0 MG, UID/QD, ORAL
     Route: 048
     Dates: start: 20090317, end: 20090902
  3. METHYLPREDNISOLONE [Suspect]
     Indication: RENAL TRANSPLANT
     Dosage: 8 MG, UID/QD, ORAL
     Route: 048
     Dates: start: 20090317, end: 20090902

REACTIONS (2)
  - GASTRIC ULCER PERFORATION [None]
  - INTESTINAL ULCER PERFORATION [None]
